FAERS Safety Report 4408250-5 (Version None)
Quarter: 2004Q3

REPORT INFORMATION
  Report Type: 
  Country: None (occurrence: None)
  Receive Date: 20040726
  Receipt Date: 20040726
  Transmission Date: 20050211
  Serious: Yes (Life-Threatening, Hospitalization)
  Sender: FDA-Public Use
  Company Number: None

PATIENT
  Age: 84 Year
  Sex: Female
  Weight: 59.8 kg

DRUGS (3)
  1. ANGIOMAX [Suspect]
     Indication: CORONARY ANGIOPLASTY
     Dosage: 250MG  ONE TIME  INTRAVENOUS
     Route: 042
     Dates: start: 20040722, end: 20040722
  2. ANGIOMAX [Suspect]
     Indication: MYOCARDIAL ISCHAEMIA
     Dosage: 250MG  ONE TIME  INTRAVENOUS
     Route: 042
     Dates: start: 20040722, end: 20040722
  3. PLAVIX [Concomitant]

REACTIONS (3)
  - CARDIO-RESPIRATORY ARREST [None]
  - CORONARY ARTERY OCCLUSION [None]
  - POST PROCEDURAL COMPLICATION [None]
